FAERS Safety Report 9424619 (Version 1)
Quarter: 2013Q3

REPORT INFORMATION
  Report Type: Report from Study
  Country: CO (occurrence: CO)
  Receive Date: 20130729
  Receipt Date: 20130729
  Transmission Date: 20140515
  Serious: Yes (Hospitalization)
  Sender: FDA-Public Use
  Company Number: CO-SANOFI-AVENTIS-2013SA073830

PATIENT
  Age: 34 Year
  Sex: Female

DRUGS (2)
  1. LANTUS [Suspect]
     Indication: DIABETES MELLITUS
     Dosage: DOSE:28 UNIT(S)
     Route: 058
     Dates: start: 2012
  2. APIDRA [Suspect]
     Indication: DIABETES MELLITUS
     Dosage: DOSE:15 UNIT(S)
     Route: 058
     Dates: start: 2012

REACTIONS (3)
  - Hypertension [Recovered/Resolved]
  - Exposure during pregnancy [Unknown]
  - Sickle cell anaemia [Recovered/Resolved]
